FAERS Safety Report 6763269-4 (Version None)
Quarter: 2010Q2

REPORT INFORMATION
  Report Type: 
  Country: None (occurrence: None)
  Receive Date: 20100610
  Receipt Date: 20100604
  Transmission Date: 20101027
  Serious: Yes (Other)
  Sender: FDA-Public Use
  Company Number: US-JNJFOC-20100602672

PATIENT
  Sex: Female
  Weight: 53.52 kg

DRUGS (4)
  1. DURAGESIC-100 [Suspect]
     Indication: FIBROMYALGIA
     Dosage: 100UG/HR+25UG/HR
     Route: 062
  2. DURAGESIC-100 [Suspect]
     Indication: BACK PAIN
     Dosage: 100UG/HR+25UG/HR
     Route: 062
  3. DURAGESIC-100 [Suspect]
     Dosage: 100UG/HR+25UG/HR
     Route: 062
  4. DURAGESIC-100 [Suspect]
     Dosage: 100UG/HR+25UG/HR
     Route: 062

REACTIONS (7)
  - ANXIETY [None]
  - BODY HEIGHT DECREASED [None]
  - DEPRESSION [None]
  - DRUG EFFECT DECREASED [None]
  - GASTRIC HAEMORRHAGE [None]
  - PRODUCT ADHESION ISSUE [None]
  - PRODUCT QUALITY ISSUE [None]
